FAERS Safety Report 8439711-X (Version None)
Quarter: 2012Q2

REPORT INFORMATION
  Report Type: 
  Country: None (occurrence: None)
  Receive Date: 20120323
  Receipt Date: 20110818
  Transmission Date: 20120825
  Serious: Yes (Hospitalization, Other)
  Sender: FDA-Public Use
  Company Number: 163-21880-11053836

PATIENT
  Age: 74 Year
  Sex: Male

DRUGS (11)
  1. EMLA (EMLA)(CREAM) [Concomitant]
  2. AMLODIPINE BESYLATE (AMLODIPINE BESILATE)(UNKNOWN [Concomitant]
  3. VICODIN [Concomitant]
  4. IRON (IRON)(UNKNOWN) [Concomitant]
  5. COSTANZI (SOLUTION) [Concomitant]
  6. REVLIMID [Suspect]
     Indication: MULTIPLE MYELOMA
     Dosage: 25 MG, QD FOR 14 DAYS EVERY 21 DAYS, PO
     Route: 048
     Dates: start: 20110418, end: 20110523
  7. PROCHLORPERAZINE (PROCHLORPERAZINE)(UNKNOWN) [Concomitant]
  8. DEXAMETHASONE [Concomitant]
  9. ASPIRIN [Concomitant]
  10. ALLOPURINOL [Concomitant]
  11. LEVOTHYROXINE SODIUM [Concomitant]

REACTIONS (4)
  - PNEUMONIA [None]
  - ATRIAL FIBRILLATION [None]
  - DYSPNOEA [None]
  - HYPOTHYROIDISM [None]
